FAERS Safety Report 5241882-3 (Version None)
Quarter: 2007Q1

REPORT INFORMATION
  Report Type: 
  Country: None (occurrence: None)
  Receive Date: 20070220
  Receipt Date: 20070212
  Transmission Date: 20070707
  Serious: Yes (Other)
  Sender: FDA-Public Use
  Company Number: GB-PFIZER INC-2007012078

PATIENT
  Age: 35 Year
  Sex: Female

DRUGS (1)
  1. EXUBERA [Suspect]
     Route: 055

REACTIONS (2)
  - COUGH [None]
  - THROAT TIGHTNESS [None]
